FAERS Safety Report 24695637 (Version 1)
Quarter: 2024Q4

REPORT INFORMATION
  Report Type: Spontaneous
  Country: FR (occurrence: FR)
  Receive Date: 20241204
  Receipt Date: 20241204
  Transmission Date: 20250115
  Serious: Yes (Life-Threatening)
  Sender: SANDOZ
  Company Number: None

PATIENT
  Age: 43 Year
  Sex: Male
  Weight: 70 kg

DRUGS (3)
  1. VALPROATE SODIUM [Suspect]
     Active Substance: VALPROATE SODIUM
     Indication: Poisoning deliberate
     Dosage: 12.000DF
     Route: 048
     Dates: start: 20241105, end: 20241105
  2. ACETAMINOPHEN [Suspect]
     Active Substance: ACETAMINOPHEN
     Indication: Poisoning deliberate
     Dosage: 16.000G
     Route: 048
     Dates: start: 20241105, end: 20241105
  3. OXAZEPAM [Suspect]
     Active Substance: OXAZEPAM
     Indication: Poisoning deliberate
     Dosage: 20.000G
     Route: 048
     Dates: start: 20241105, end: 20241105

REACTIONS (5)
  - Vomiting [Recovered/Resolved]
  - Coma [Recovered/Resolved]
  - Hypoxia [Recovered/Resolved]
  - Hypotension [Recovered/Resolved]
  - Hyperlactacidaemia [Recovered/Resolved]

NARRATIVE: CASE EVENT DATE: 20241105
